FAERS Safety Report 24849768 (Version 1)
Quarter: 2025Q1

REPORT INFORMATION
  Report Type: Report from Study
  Country: US (occurrence: US)
  Receive Date: 20250116
  Receipt Date: 20250116
  Transmission Date: 20250409
  Serious: Yes (Hospitalization, Other)
  Sender: ABBVIE
  Company Number: US-ABBVIE-5914651

PATIENT
  Age: 49 Year
  Sex: Male
  Weight: 81.64 kg

DRUGS (17)
  1. HUMIRA [Suspect]
     Active Substance: ADALIMUMAB
     Indication: Product used for unknown indication
     Dosage: CITRATE FREE
     Route: 058
     Dates: start: 202304, end: 202312
  2. COVID-19 Vaccine [Concomitant]
     Indication: COVID-19 immunisation
     Route: 030
  3. NORVASC [Concomitant]
     Active Substance: AMLODIPINE BESYLATE
     Indication: Product used for unknown indication
     Dosage: TAKE 1 TABLET (5 MG TOTAL) BY MOUTH DAILY
     Route: 048
  4. DIPROSONE [Concomitant]
     Active Substance: BETAMETHASONE DIPROPIONATE
     Indication: Product used for unknown indication
     Route: 061
  5. DOVONEX [Concomitant]
     Active Substance: CALCIPOTRIENE
     Indication: Skin irritation
     Route: 061
  6. ERGOCALCIFEROL [Concomitant]
     Active Substance: ERGOCALCIFEROL
     Indication: Product used for unknown indication
     Dosage: STRENGTH- 1,250 MCG (50,000 UNIT) CAPSULE?TAKE 1 CAPSULE (50,000 UNITS TOTAL) BY MOUTH ONCE A WEEK.
     Route: 048
     Dates: end: 20240105
  7. MOBIC [Concomitant]
     Active Substance: MELOXICAM
     Indication: Arthralgia
     Dosage: TAKE 1 TABLET (15 MG TOTAL) BY MOUTH DAILY. AS NEEDED FOR JOINT PAINS
     Route: 048
  8. MOBIC [Concomitant]
     Active Substance: MELOXICAM
     Indication: Arthralgia
     Dosage: TAKE 7.5 MG BY MOUTH DAILY.
     Route: 048
  9. PROTOPIC [Concomitant]
     Active Substance: TACROLIMUS
     Indication: Product used for unknown indication
     Route: 061
  10. ASPIRIN [Concomitant]
     Active Substance: ASPIRIN
     Indication: Product used for unknown indication
     Route: 048
  11. DAPTOMYCIN [Concomitant]
     Active Substance: DAPTOMYCIN
     Indication: Product used for unknown indication
     Route: 042
  12. VOLTAREN [Concomitant]
     Active Substance: DICLOFENAC SODIUM
     Indication: Product used for unknown indication
     Dosage: TAKE 1 TABLET BY MOUTH 2 TIMES DAILY AS NEEDED.?75 MG TBEC
     Route: 048
  13. ROXICODONE [Concomitant]
     Active Substance: OXYCODONE HYDROCHLORIDE
     Indication: Pain
     Dosage: TAKE 1/2 TABLET BY MOUTH FOR MILD PAIN OR A WHOLE TABLET FOR SEVERE PAIN EVERY 6 HOURS AS NEEDED ...
     Route: 048
  14. SENOKOT-S [Concomitant]
     Active Substance: DOCUSATE SODIUM\SENNOSIDES
     Indication: Product used for unknown indication
     Route: 048
  15. MODERNA COVID-19 VACCINE [Concomitant]
     Active Substance: ELASOMERAN
     Indication: COVID-19 immunisation
     Route: 030
     Dates: start: 20230109
  16. PFIZER-BIONTECH COVID-19 VACCINE [Concomitant]
     Active Substance: TOZINAMERAN
     Indication: COVID-19 immunisation
     Route: 030
     Dates: start: 20210325, end: 20210325
  17. PFIZER-BIONTECH COVID-19 VACCINE [Concomitant]
     Active Substance: TOZINAMERAN
     Indication: COVID-19 immunisation
     Route: 030
     Dates: start: 20210421, end: 20210421

REACTIONS (7)
  - Joint effusion [Unknown]
  - Unevaluable event [Recovered/Resolved]
  - Nosocomial infection [Recovered/Resolved]
  - Arthritis bacterial [Unknown]
  - Joint swelling [Unknown]
  - Carbon dioxide abnormal [Unknown]
  - Septic arthritis staphylococcal [Unknown]

NARRATIVE: CASE EVENT DATE: 20231121
